FAERS Safety Report 5390886-9 (Version None)
Quarter: 2007Q3

REPORT INFORMATION
  Report Type: 
  Country: None (occurrence: None)
  Receive Date: 20070716
  Receipt Date: 20070708
  Transmission Date: 20080115
  Serious: Yes (Disabling)
  Sender: FDA-Public Use
  Company Number: 2007SP013926

PATIENT
  Age: 57 Year
  Sex: Female

DRUGS (13)
  1. PEG-INTRON [Suspect]
     Indication: HEPATITIS C
     Dates: start: 20050506, end: 20060406
  2. PEG-INTRON [Suspect]
     Indication: HEPATITIS C
     Dates: start: 20070202
  3. ATENOLOL [Concomitant]
  4. ATIVAN [Concomitant]
  5. BUSPAR [Concomitant]
  6. ELAVIL /00002202/ [Concomitant]
  7. ESTRACE [Concomitant]
  8. FIORINAL /01000501/ [Concomitant]
  9. LEXAPRO [Concomitant]
  10. LIPITOR /00034001/ [Concomitant]
  11. LOMOTIL /00034001/ [Concomitant]
  12. PHENERGAN /00033001/ [Concomitant]
  13. TYLENOL EXTRA-STRENGTH [Concomitant]

REACTIONS (9)
  - ABDOMINAL PAIN [None]
  - CRYING [None]
  - DISEASE RECURRENCE [None]
  - DRY MOUTH [None]
  - DYSPNOEA [None]
  - FATIGUE [None]
  - PANIC ATTACK [None]
  - PRODUCTIVE COUGH [None]
  - STRESS [None]
